FAERS Safety Report 15119545 (Version 3)
Quarter: 2018Q3

REPORT INFORMATION
  Report Type: Spontaneous
  Country: US (occurrence: US)
  Receive Date: 20180709
  Receipt Date: 20180720
  Transmission Date: 20181010
  Serious: No
  Sender: FDA-Public Use
  Company Number: US-PFIZER INC-2018274323

PATIENT
  Age: 49 Year
  Sex: Female
  Weight: 70.3 kg

DRUGS (2)
  1. LYRICA [Suspect]
     Active Substance: PREGABALIN
     Indication: FIBROMYALGIA
     Dosage: 200 MG, 2X/DAY
     Route: 048
  2. LYRICA [Suspect]
     Active Substance: PREGABALIN
     Indication: NEUROPATHY PERIPHERAL

REACTIONS (11)
  - Stress [Unknown]
  - Hyperhidrosis [Not Recovered/Not Resolved]
  - Chills [Not Recovered/Not Resolved]
  - Pain [Unknown]
  - Headache [Unknown]
  - Bedridden [Unknown]
  - Withdrawal syndrome [Unknown]
  - Emotional disorder [Unknown]
  - Crying [Unknown]
  - Nausea [Not Recovered/Not Resolved]
  - Feeling of body temperature change [Unknown]
